FAERS Safety Report 4647665-7 (Version None)
Quarter: 2005Q2

REPORT INFORMATION
  Report Type: 
  Country: None (occurrence: None)
  Receive Date: 20050428
  Receipt Date: 20050421
  Transmission Date: 20051028
  Serious: Yes (Hospitalization)
  Sender: FDA-Public Use
  Company Number: CN-MERCK-0504CHN00015

PATIENT
  Age: 80 Year
  Sex: Male

DRUGS (2)
  1. PRIMAXIN [Suspect]
     Indication: RESPIRATORY TRACT INFECTION
     Route: 042
     Dates: start: 20050417, end: 20050421
  2. CEFOPERAZONE SODIUM AND SULBACTAM SODIUM [Concomitant]
     Indication: RESPIRATORY TRACT INFECTION
     Route: 042

REACTIONS (4)
  - ABNORMAL BEHAVIOUR [None]
  - AGGRESSION [None]
  - DELIRIUM [None]
  - EXCITABILITY [None]
